FAERS Safety Report 8586462-7 (Version None)
Quarter: 2012Q3

REPORT INFORMATION
  Report Type: 
  Country: None (occurrence: None)
  Receive Date: 20120810
  Receipt Date: 20120807
  Transmission Date: 20120928
  Serious: Yes (Other)
  Sender: FDA-Public Use
  Company Number: BR-ROCHE-717229

PATIENT
  Sex: Female
  Weight: 62 kg

DRUGS (12)
  1. VALERIANE [Concomitant]
     Indication: SEDATIVE THERAPY
  2. IBUPROFEN [Concomitant]
  3. METHIONINE [Concomitant]
  4. GELATIN [Concomitant]
     Indication: UNEVALUABLE EVENT
  5. GESTODENE [Concomitant]
     Indication: CONTRACEPTION
     Dosage: DRUG NAME REPORTED AS GINERA
  6. DAFORIN [Concomitant]
  7. SIMVASTATIN [Concomitant]
  8. MABTHERA [Suspect]
     Indication: RHEUMATOID ARTHRITIS
     Route: 065
     Dates: start: 20100610, end: 20120624
  9. COLLAGEN [Concomitant]
     Indication: UNEVALUABLE EVENT
  10. SILYMARIN [Concomitant]
  11. RISEDROSS [Concomitant]
  12. GESTODENE AND ETHINYL ESTRADIOL [Concomitant]

REACTIONS (14)
  - NASAL DISCOMFORT [None]
  - TREMOR [None]
  - SKIN DISCOLOURATION [None]
  - COUGH [None]
  - LIP DISCOLOURATION [None]
  - GINGIVAL PRURITUS [None]
  - AGITATION [None]
  - HYPERSENSITIVITY [None]
  - DEPRESSION [None]
  - URTICARIA [None]
  - SOMNOLENCE [None]
  - THROAT IRRITATION [None]
  - GINGIVAL PAIN [None]
  - MALAISE [None]
